FAERS Safety Report 14720056 (Version 1)
Quarter: 2018Q2

REPORT INFORMATION
  Report Type: Other
  Country: FR (occurrence: FR)
  Receive Date: 20180405
  Receipt Date: 20180405
  Transmission Date: 20180711
  Serious: Yes (Hospitalization, Other)
  Sender: FDA-Public Use
  Company Number: FR-MACLEODS PHARMACEUTICALS US LTD-MAC2018012166

PATIENT

DRUGS (11)
  1. VALSARTAN. [Suspect]
     Active Substance: VALSARTAN
     Indication: HYPERTENSION
     Dosage: 1 DF, QD
     Route: 048
  2. LEVEMIR [Suspect]
     Active Substance: INSULIN DETEMIR
     Indication: DIABETES MELLITUS
     Dosage: 22UI/J
     Route: 058
  3. LYRICA [Suspect]
     Active Substance: PREGABALIN
     Indication: PRODUCT USED FOR UNKNOWN INDICATION
     Dosage: 2 DF, QD, HARD CAPSULES
     Route: 048
  4. TAHOR [Suspect]
     Active Substance: ATORVASTATIN CALCIUM
     Indication: DYSLIPIDAEMIA
     Dosage: 20 MG, QD, COATED TABLET
     Route: 048
  5. ALLOPURINOL. [Suspect]
     Active Substance: ALLOPURINOL
     Indication: PRODUCT USED FOR UNKNOWN INDICATION
     Dosage: 1 DF, QD
     Route: 048
  6. GLICLAZIDE [Suspect]
     Active Substance: GLICLAZIDE
     Indication: TYPE 2 DIABETES MELLITUS
     Dosage: 1 DF, QD
     Route: 048
  7. PERMIXON [Suspect]
     Active Substance: HERBALS\SAW PALMETTO
     Indication: BENIGN PROSTATIC HYPERPLASIA
     Dosage: 2 DF, QD
     Route: 048
  8. DOLIPRANE [Suspect]
     Active Substance: ACETAMINOPHEN
     Indication: PAIN
     Dosage: 1000 MG, QD
     Route: 048
  9. KESTIN [Suspect]
     Active Substance: EBASTINE
     Indication: PRODUCT USED FOR UNKNOWN INDICATION
     Dosage: 1 DF, QD
     Route: 048
  10. METFORMIN HYDROCHLORIDE. [Suspect]
     Active Substance: METFORMIN HYDROCHLORIDE
     Indication: TYPE 2 DIABETES MELLITUS
     Dosage: 3 DF, QD
     Route: 048
  11. ATENOLOL. [Suspect]
     Active Substance: ATENOLOL
     Indication: HYPERTENSION
     Dosage: 1 DF, QD
     Route: 048

REACTIONS (3)
  - Pulmonary fibrosis [Not Recovered/Not Resolved]
  - Interstitial lung disease [Not Recovered/Not Resolved]
  - Dyspnoea [Not Recovered/Not Resolved]

NARRATIVE: CASE EVENT DATE: 20150825
